FAERS Safety Report 6136134-3 (Version None)
Quarter: 2009Q1

REPORT INFORMATION
  Report Type: 
  Country: None (occurrence: None)
  Receive Date: 20090330
  Receipt Date: 20090317
  Transmission Date: 20090719
  Serious: Yes (Disabling, Other)
  Sender: FDA-Public Use
  Company Number: US-ROCHE-473703

PATIENT
  Sex: Female
  Weight: 74.4 kg

DRUGS (3)
  1. ACCUTANE [Suspect]
     Route: 048
     Dates: start: 19950101
  2. ACCUTANE [Suspect]
     Route: 048
     Dates: start: 19970401
  3. ORTHO TRI-CYCLEN LO [Concomitant]

REACTIONS (28)
  - ACQUIRED OESOPHAGEAL WEB [None]
  - ALOPECIA [None]
  - ANAEMIA [None]
  - ANAL FISSURE [None]
  - BLEPHARITIS ALLERGIC [None]
  - CELLULITIS [None]
  - COLITIS [None]
  - COLITIS ULCERATIVE [None]
  - EYE INFLAMMATION [None]
  - EYE PAIN [None]
  - GASTRITIS [None]
  - HAEMORRHAGE [None]
  - HAEMORRHOIDS [None]
  - HEADACHE [None]
  - HIATUS HERNIA [None]
  - HIGH DENSITY LIPOPROTEIN INCREASED [None]
  - INFLAMMATORY BOWEL DISEASE [None]
  - INTESTINAL POLYP [None]
  - LYMPHOID TISSUE HYPERPLASIA [None]
  - MELANOCYTIC NAEVUS [None]
  - MIGRAINE [None]
  - OESOPHAGEAL STENOSIS [None]
  - OSTEOPOROSIS [None]
  - PHOTOPHOBIA [None]
  - PROCTITIS [None]
  - PROCTITIS ULCERATIVE [None]
  - UPPER RESPIRATORY TRACT INFECTION [None]
  - VIRAL INFECTION [None]
